FAERS Safety Report 12802336 (Version 1)
Quarter: 2016Q4

REPORT INFORMATION
  Report Type: Spontaneous
  Country: US (occurrence: US)
  Receive Date: 20161003
  Receipt Date: 20161003
  Transmission Date: 20170207
  Serious: Yes (Disabling)
  Sender: FDA-Public Use
  Company Number: None

PATIENT
  Age: 82 Year
  Sex: Female
  Weight: 158 kg

DRUGS (10)
  1. POTASSIUM CL [Concomitant]
     Active Substance: POTASSIUM CHLORIDE
  2. CALCIUM [Concomitant]
     Active Substance: CALCIUM
  3. LOSARTAN AND HYDROCHLOROTHIAZIDE [Concomitant]
     Active Substance: HYDROCHLOROTHIAZIDE\LOSARTAN POTASSIUM
  4. NEXIUM [Concomitant]
     Active Substance: ESOMEPRAZOLE MAGNESIUM
  5. METFORMIN [Concomitant]
     Active Substance: METFORMIN HYDROCHLORIDE
  6. METOPROLOL. [Concomitant]
     Active Substance: METOPROLOL
  7. TYLENOL [Concomitant]
     Active Substance: ACETAMINOPHEN
  8. VITAMIN D3 [Concomitant]
     Active Substance: CHOLECALCIFEROL
  9. PROLIA [Suspect]
     Active Substance: DENOSUMAB
     Dosage: INJECTION, 1 SHOT 2 A YEAR
     Dates: start: 20160629
  10. PRAVASTATIN. [Concomitant]
     Active Substance: PRAVASTATIN

REACTIONS (5)
  - Gait disturbance [None]
  - Arthralgia [None]
  - Insomnia [None]
  - Pain in extremity [None]
  - Diarrhoea [None]

NARRATIVE: CASE EVENT DATE: 20160629
